APPROVED DRUG PRODUCT: BROMPHENIRAMINE MALEATE
Active Ingredient: BROMPHENIRAMINE MALEATE
Strength: 2MG/5ML
Dosage Form/Route: ELIXIR;ORAL
Application: A087964 | Product #001
Applicant: USL PHARMA INC
Approved: Jan 25, 1983 | RLD: No | RS: No | Type: DISCN